FAERS Safety Report 9115451 (Version 2)
Quarter: 2013Q1

REPORT INFORMATION
  Report Type: Spontaneous
  Country: US (occurrence: None)
  Receive Date: 20130129
  Receipt Date: 20130206
  Transmission Date: 20140127
  Serious: Yes (Death, Other)
  Sender: FDA-Public Use
  Company Number: 2013-0124

PATIENT
  Age: 81 Year
  Sex: Male

DRUGS (5)
  1. KYPROLIS (CARFILZOMIB) [Suspect]
     Indication: PLASMA CELL MYELOMA
  2. COUMADIN (WARFARIN SODIUM) (WARFARIN SODIUM) [Concomitant]
  3. ANTIVERT (MECLOZINE HYDROCHLORIDE) (MECLOZINE HYDROCHLORIDE) [Concomitant]
  4. FINASTERIDE (FINASTERIDE) (FINASTERIDE) [Concomitant]
  5. ASPIRIN (ACETYLSALICYLIC ACID) (ACETYLSALICYLIC ACID) [Concomitant]

REACTIONS (9)
  - Dizziness [None]
  - Tremor [None]
  - Musculoskeletal chest pain [None]
  - Fall [None]
  - Swelling face [None]
  - Convulsion [None]
  - Chest discomfort [None]
  - Muscle tightness [None]
  - Condition aggravated [None]
